FAERS Safety Report 6852633-0 (Version None)
Quarter: 2010Q3

REPORT INFORMATION
  Report Type: 
  Country: None (occurrence: None)
  Receive Date: 20100717
  Receipt Date: 20080303
  Transmission Date: 20110219
  Serious: Yes (Other)
  Sender: FDA-Public Use
  Company Number: US-PFIZER INC-2007096472

PATIENT
  Sex: Female
  Weight: 77.3 kg

DRUGS (11)
  1. CHANTIX [Suspect]
     Indication: SMOKING CESSATION THERAPY
     Route: 048
     Dates: start: 20071108
  2. DETROL [Concomitant]
  3. CYCLOBENZAPRINE [Concomitant]
  4. MONTELUKAST SODIUM [Concomitant]
  5. DICLOFENAC [Concomitant]
  6. TRAZODONE HYDROCHLORIDE [Concomitant]
  7. EFFEXOR [Concomitant]
  8. ROZEREM [Concomitant]
  9. POTASSIUM CHLORIDE [Concomitant]
  10. FUROSEMIDE [Concomitant]
  11. BUPRENORPHINE HCL AND NALOXONE HCL [Concomitant]
     Indication: FATIGUE

REACTIONS (5)
  - ABNORMAL DREAMS [None]
  - DEPRESSED MOOD [None]
  - INSOMNIA [None]
  - NIGHTMARE [None]
  - SUICIDAL IDEATION [None]
